FAERS Safety Report 24283165 (Version 1)
Quarter: 2024Q3

REPORT INFORMATION
  Report Type: Spontaneous
  Country: GB (occurrence: GB)
  Receive Date: 20240904
  Receipt Date: 20240904
  Transmission Date: 20241016
  Serious: Yes (Other)
  Sender: SANDOZ
  Company Number: None

PATIENT

DRUGS (1)
  1. TYRUKO [Suspect]
     Active Substance: NATALIZUMAB-SZTN
     Indication: Product used for unknown indication
     Dosage: UNK
     Route: 065

REACTIONS (11)
  - Joint swelling [Unknown]
  - Joint stiffness [Unknown]
  - Contusion [Unknown]
  - Scab [Unknown]
  - Night sweats [Unknown]
  - Migraine [Unknown]
  - Skin lesion [Unknown]
  - Purpura [Unknown]
  - Infusion site inflammation [Unknown]
  - Urticaria [Unknown]
  - Pruritus [Unknown]
